FAERS Safety Report 11805849 (Version 1)
Quarter: 2015Q4

REPORT INFORMATION
  Report Type: Spontaneous
  Country: BE (occurrence: BE)
  Receive Date: 20151207
  Receipt Date: 20151207
  Transmission Date: 20160305
  Serious: Yes (Death, Life-Threatening, Hospitalization)
  Sender: FDA-Public Use
  Company Number: BE-ROCHE-1673064

PATIENT
  Age: 80 Year
  Sex: Male

DRUGS (1)
  1. XELODA [Suspect]
     Active Substance: CAPECITABINE
     Indication: RECTAL CANCER
     Route: 048
     Dates: start: 201505, end: 201506

REACTIONS (5)
  - Electrolyte imbalance [Fatal]
  - Coma [Fatal]
  - Mucosal inflammation [Fatal]
  - Diarrhoea [Fatal]
  - Organ failure [Fatal]

NARRATIVE: CASE EVENT DATE: 201506
